FAERS Safety Report 7478449-2 (Version None)
Quarter: 2011Q2

REPORT INFORMATION
  Report Type: 
  Country: None (occurrence: None)
  Receive Date: 20110505
  Receipt Date: 20110420
  Transmission Date: 20111010
  Serious: Yes (Other)
  Sender: FDA-Public Use
  Company Number: 8040176

PATIENT
  Sex: Female

DRUGS (4)
  1. ASACOL [Concomitant]
  2. CIMZIA [Suspect]
     Indication: CROHN'S DISEASE
     Dosage: 400 MG 1X/2 WEEKS SUBCUTANEOUS
     Route: 058
     Dates: start: 20081112, end: 20081124
  3. BENADRYL [Concomitant]
  4. THYROID TAB [Concomitant]

REACTIONS (2)
  - INJECTION SITE URTICARIA [None]
  - URTICARIA [None]
